FAERS Safety Report 26097730 (Version 1)
Quarter: 2025Q4

REPORT INFORMATION
  Report Type: Spontaneous
  Country: US (occurrence: US)
  Receive Date: 20251127
  Receipt Date: 20251127
  Transmission Date: 20260118
  Serious: Yes (Death, Other)
  Sender: SANOFI AVENTIS
  Company Number: US-SA-2025SA347780

PATIENT
  Age: 75 Year
  Sex: Female
  Weight: 72.73 kg

DRUGS (8)
  1. DUPIXENT [Suspect]
     Active Substance: DUPILUMAB
     Indication: Chronic obstructive pulmonary disease
     Dosage: 300 MG, QOW
     Route: 058
     Dates: start: 202505, end: 20251026
  2. OXYGEN [Concomitant]
     Active Substance: OXYGEN
  3. HUMALOG [Concomitant]
     Active Substance: INSULIN LISPRO
  4. SIMVASTATIN [Concomitant]
     Active Substance: SIMVASTATIN
  5. PREDNISONE [Concomitant]
     Active Substance: PREDNISONE
  6. CLOPIDOGREL [Concomitant]
     Active Substance: CLOPIDOGREL BISULFATE
  7. LISINOPRIL [Concomitant]
     Active Substance: LISINOPRIL
  8. METOPROLOL SUCCINATE [Concomitant]
     Active Substance: METOPROLOL SUCCINATE

REACTIONS (1)
  - Myocardial infarction [Fatal]

NARRATIVE: CASE EVENT DATE: 20250101
